FAERS Safety Report 10489635 (Version 1)
Quarter: 2014Q4

REPORT INFORMATION
  Report Type: Spontaneous
  Country: IN (occurrence: IN)
  Receive Date: 20141002
  Receipt Date: 20141002
  Transmission Date: 20150528
  Serious: Yes (Hospitalization)
  Sender: FDA-Public Use
  Company Number: PHHY2014IN126031

PATIENT
  Age: 44 Year
  Sex: Male

DRUGS (8)
  1. ZINC [Concomitant]
     Active Substance: ZINC\ZINC CHLORIDE
  2. VALPROATE SODIUM. [Concomitant]
     Active Substance: VALPROATE SODIUM
  3. TRIHEXYPHENIDYL [Concomitant]
     Active Substance: TRIHEXYPHENIDYL
  4. ZUCLOPENTHIXOL [Suspect]
     Active Substance: ZUCLOPENTHIXOL
     Dosage: 1 ML EVERY 2 WEEKS
     Route: 030
  5. IRON [Concomitant]
     Active Substance: IRON
  6. HALOPERIDOL. [Suspect]
     Active Substance: HALOPERIDOL
  7. CHLORPROMAZINE [Suspect]
     Active Substance: CHLORPROMAZINE
  8. VITAMIN B COMPLEX [Concomitant]
     Active Substance: CYANOCOBALAMIN\DEXPANTHENOL\NIACINAMIDE\PYRIDOXINE HYDROCHLORIDE\RIBOFLAVIN 5^-PHOSPHATE SODIUM\THIAMINE HYDROCHLORIDE\VITAMIN B COMPLEX

REACTIONS (3)
  - Moderate mental retardation [Recovering/Resolving]
  - Abnormal behaviour [Recovering/Resolving]
  - Hyponatraemia [Recovering/Resolving]
